FAERS Safety Report 10759851 (Version 1)
Quarter: 2015Q1

REPORT INFORMATION
  Report Type: Spontaneous
  Country: US (occurrence: US)
  Receive Date: 20150203
  Receipt Date: 20150203
  Transmission Date: 20150721
  Serious: Yes (Other)
  Sender: FDA-Public Use
  Company Number: US-MYLANLABS-2015M1002833

PATIENT

DRUGS (3)
  1. TACROLIMUS. [Suspect]
     Active Substance: TACROLIMUS
     Indication: IMMUNOSUPPRESSANT DRUG THERAPY
     Route: 048
  2. PREDNISOLONE. [Concomitant]
     Active Substance: PREDNISOLONE
     Indication: IMMUNOSUPPRESSANT DRUG THERAPY
     Route: 048
  3. PHENOXYMETHYLPENICILLIN POTASSIUM [Concomitant]
     Active Substance: PENICILLIN V POTASSIUM
     Indication: IMMUNOSUPPRESSANT DRUG THERAPY
     Route: 048

REACTIONS (1)
  - Autoimmune haemolytic anaemia [Recovered/Resolved]
